FAERS Safety Report 8064248-X (Version None)
Quarter: 2011Q4

REPORT INFORMATION
  Report Type: 
  Country: None (occurrence: None)
  Receive Date: 20111221
  Receipt Date: 20110824
  Transmission Date: 20120403
  Serious: No
  Sender: FDA-Public Use
  Company Number: 2011S1000066

PATIENT
  Age: 46 Year
  Sex: Male
  Weight: 82.5547 kg

DRUGS (3)
  1. COLCHICINE [Concomitant]
  2. KRYSTEXXA [Suspect]
     Indication: GOUT
     Dosage: 8 MG;X1; IV
     Route: 042
     Dates: start: 20110728, end: 20110728
  3. KRYSTEXXA [Suspect]
     Indication: GOUT
     Dosage: 8 MG;X1; IV
     Route: 042
     Dates: start: 20110810, end: 20110810

REACTIONS (1)
  - THERAPEUTIC RESPONSE DECREASED [None]
